FAERS Safety Report 6796362-0 (Version None)
Quarter: 2010Q2

REPORT INFORMATION
  Report Type: 
  Country: None (occurrence: None)
  Receive Date: 20100622
  Receipt Date: 20100608
  Transmission Date: 20101027
  Serious: Yes (Death)
  Sender: FDA-Public Use
  Company Number: 013546

PATIENT
  Age: 64 Year
  Sex: Male

DRUGS (4)
  1. VIMPAT [Suspect]
     Dosage: 200 MG BID
  2. KEPPRA [Suspect]
     Dosage: 1500 MG BID
  3. TOPIRAMATE [Concomitant]
  4. ZONISAMIDE [Concomitant]

REACTIONS (2)
  - EPILEPSY [None]
  - MYOCARDIAL INFARCTION [None]
